FAERS Safety Report 23950676 (Version 1)
Quarter: 2024Q2

REPORT INFORMATION
  Report Type: Report from Study
  Country: FR (occurrence: FR)
  Receive Date: 20240607
  Receipt Date: 20240607
  Transmission Date: 20240716
  Serious: No
  Sender: FDA-Public Use
  Company Number: FR-SPRINGWORKS THERAPEUTICS-SW-001655

PATIENT
  Age: 47 Year
  Sex: Female

DRUGS (2)
  1. NIROGACESTAT [Suspect]
     Active Substance: NIROGACESTAT
     Indication: Desmoid tumour
     Dosage: UNK
     Dates: start: 20240305
  2. NIROGACESTAT [Suspect]
     Active Substance: NIROGACESTAT
     Dosage: 100 MILLIGRAM (MORNING AND EVENING)

REACTIONS (3)
  - Weight decreased [Unknown]
  - Nausea [Unknown]
  - Diarrhoea [Unknown]
